FAERS Safety Report 19909353 (Version 1)
Quarter: 2021Q4

REPORT INFORMATION
  Report Type: Spontaneous
  Country: US (occurrence: US)
  Receive Date: 20211001
  Receipt Date: 20211001
  Transmission Date: 20220304
  Serious: No
  Sender: FDA-Public Use
  Company Number: US-ELI_LILLY_AND_COMPANY-US202109009255

PATIENT
  Sex: Female

DRUGS (1)
  1. FORTEO [Suspect]
     Active Substance: TERIPARATIDE
     Indication: Product used for unknown indication
     Dosage: UNK UNK, UNKNOWN
     Route: 065
     Dates: start: 202012

REACTIONS (12)
  - Pathological fracture [Unknown]
  - Ankle fracture [Unknown]
  - Osteoporosis [Unknown]
  - Heart rate increased [Unknown]
  - Foot fracture [Unknown]
  - Memory impairment [Unknown]
  - Road traffic accident [Unknown]
  - Palpitations [Unknown]
  - Sleep disorder due to general medical condition, insomnia type [Unknown]
  - Body height decreased [Unknown]
  - Fracture [Unknown]
  - Osteopenia [Unknown]

NARRATIVE: CASE EVENT DATE: 20200101
